FAERS Safety Report 7081026-9 (Version None)
Quarter: 2010Q4

REPORT INFORMATION
  Report Type: 
  Country: None (occurrence: None)
  Receive Date: 20101103
  Receipt Date: 20101029
  Transmission Date: 20110411
  Serious: Yes (Life-Threatening, Other)
  Sender: FDA-Public Use
  Company Number: NL-ROCHE-668265

PATIENT
  Sex: Female

DRUGS (9)
  1. ROACTEMRA [Suspect]
     Indication: RHEUMATOID ARTHRITIS
     Dosage: TOTAL MONTHLY DOSE: 640 MG, FREQUENCY: MONTHLY
     Route: 042
     Dates: start: 20090601
  2. ROACTEMRA [Suspect]
     Route: 042
     Dates: start: 20090701
  3. ROACTEMRA [Suspect]
     Route: 042
     Dates: start: 20090801
  4. ROACTEMRA [Suspect]
     Route: 042
     Dates: start: 20090901
  5. ROACTEMRA [Suspect]
     Route: 042
     Dates: start: 20100101
  6. STEROID NOS [Suspect]
     Dosage: DRUG REPORTED AS: UNSPECIFIED STEROIDS.
     Route: 065
  7. NAPROXEN [Concomitant]
  8. CORTICOSTEROIDS [Concomitant]
     Dosage: FREQUENCY: DAILY
  9. GOLD [Concomitant]
     Dosage: DRUG: IM GOLD
     Route: 030

REACTIONS (2)
  - DIARRHOEA [None]
  - GASTROINTESTINAL PERFORATION [None]
